FAERS Safety Report 17166272 (Version 3)
Quarter: 2023Q2

REPORT INFORMATION
  Report Type: Spontaneous
  Country: DE (occurrence: DE)
  Receive Date: 20191217
  Receipt Date: 20230613
  Transmission Date: 20230721
  Serious: Yes (Death, Other)
  Sender: FDA-Public Use
  Company Number: DE-EMA-DD-20191209-ABDUL_J-205336

PATIENT
  Age: 66 Year
  Sex: Female

DRUGS (2)
  1. DOCETAXEL [Suspect]
     Active Substance: DOCETAXEL
     Indication: Product used for unknown indication
     Dosage: UNK
     Route: 065
     Dates: start: 201802
  2. NINTEDANIB [Suspect]
     Active Substance: NINTEDANIB
     Indication: Non-small cell lung cancer
     Dosage: 400 MG, QD
     Route: 048
     Dates: start: 20171102, end: 20180202

REACTIONS (5)
  - Non-small cell lung cancer [Fatal]
  - Respiratory failure [Fatal]
  - Malignant neoplasm progression [Unknown]
  - Polyneuropathy [Unknown]
  - Palmar-plantar erythrodysaesthesia syndrome [Unknown]

NARRATIVE: CASE EVENT DATE: 20180314
